FAERS Safety Report 6433216-3 (Version None)
Quarter: 2009Q4

REPORT INFORMATION
  Report Type: 
  Country: None (occurrence: None)
  Receive Date: 20091109
  Receipt Date: 20091029
  Transmission Date: 20100525
  Serious: Yes (Other)
  Sender: FDA-Public Use
  Company Number: US-PFIZER INC-2009286681

PATIENT
  Sex: Female
  Weight: 58.059 kg

DRUGS (7)
  1. XALATAN [Suspect]
     Indication: GLAUCOMA
     Dosage: 1 DROP (1.5 MCG)  IN EACH EYE DAILY
     Dates: start: 20080101
  2. NORVASC [Concomitant]
     Indication: HYPERTENSION
     Dosage: 10 MG, 1X/DAY
  3. NEXIUM [Concomitant]
     Indication: ABDOMINAL DISCOMFORT
     Dosage: UNK
  4. TOPROL-XL [Concomitant]
     Indication: CARDIAC DISORDER
     Dosage: 25 MG, 1X/DAY
  5. MOBIC [Concomitant]
     Indication: ARTHRITIS
     Dosage: 15 MG, 1X/DAY
  6. ACETYLSALICYLIC ACID [Concomitant]
     Indication: CARDIAC DISORDER
     Dosage: 81 MG, 1X/DAY
  7. VYTORIN [Concomitant]
     Indication: HEART VALVE INCOMPETENCE
     Dosage: 10 MG, 1X/DAY

REACTIONS (3)
  - CATARACT OPERATION [None]
  - EYE OPERATION [None]
  - FOREIGN BODY IN EYE [None]
